FAERS Safety Report 10355395 (Version 1)
Quarter: 2014Q3

REPORT INFORMATION
  Report Type: Spontaneous
  Country: US (occurrence: US)
  Receive Date: 20140731
  Receipt Date: 20140731
  Transmission Date: 20150326
  Serious: No
  Sender: FDA-Public Use
  Company Number: US-TARO-2014TAR00072

PATIENT
  Sex: Female

DRUGS (6)
  1. CALCIPOTRIENE LIQUID (GLOBAL PHARMACEUTICALS) [Suspect]
     Active Substance: CALCIPOTRIENE HYDRATE
     Indication: PSORIASIS
     Dosage: UNK, 2X/DAY
     Route: 061
     Dates: start: 201403, end: 201403
  2. PSORCON [Suspect]
     Active Substance: DIFLORASONE DIACETATE
     Indication: PSORIASIS
     Dosage: UNK, 1X/DAY
     Route: 061
  3. FLUOCINONIDE OINTMENT (TEVA) [Suspect]
     Active Substance: FLUOCINONIDE
     Indication: PSORIASIS
  4. DIFLORASONE DIACETATE OINTMENT 0.05% [Suspect]
     Active Substance: UNSPECIFIED INGREDIENT
     Indication: PSORIASIS
     Dosage: UNK, 1X/DAY
     Route: 061
  5. FLUOCINONIDE CREAM USP 0.05% [Suspect]
     Active Substance: FLUOCINONIDE
     Indication: PSORIASIS
     Route: 061
  6. CALCIPOTRIENE OINTMENT 0.005% [Suspect]
     Active Substance: CALCIPOTRIENE
     Indication: PSORIASIS
     Dosage: UNK
     Route: 061
     Dates: start: 201403, end: 201403

REACTIONS (4)
  - Application site pain [None]
  - Drug ineffective [Unknown]
  - Psoriasis [Unknown]
  - Skin exfoliation [Unknown]

NARRATIVE: CASE EVENT DATE: 201403
